FAERS Safety Report 16020922 (Version 1)
Quarter: 2019Q2

REPORT INFORMATION
  Report Type: Spontaneous
  Country: US (occurrence: US)
  Receive Date: 20190228
  Receipt Date: 20190228
  Transmission Date: 20190711
  Serious: Yes (Hospitalization, Disabling)
  Sender: FDA-Public Use
  Company Number: None

PATIENT
  Age: 26 Year
  Sex: Male
  Weight: 74.25 kg

DRUGS (1)
  1. PROPECIA [Suspect]
     Active Substance: FINASTERIDE
     Indication: ANDROGENETIC ALOPECIA
     Dosage: ?          QUANTITY:1 TABLET(S);?
     Route: 048
     Dates: start: 20160103, end: 20160211

REACTIONS (15)
  - Muscular weakness [None]
  - Suicidal ideation [None]
  - Panic attack [None]
  - Erectile dysfunction [None]
  - Dizziness [None]
  - Disorientation [None]
  - Weight increased [None]
  - Nausea [None]
  - Sexual dysfunction [None]
  - Loss of libido [None]
  - Depression [None]
  - Anxiety [None]
  - Fatigue [None]
  - Penile pain [None]
  - Cognitive disorder [None]

NARRATIVE: CASE EVENT DATE: 20160202
